FAERS Safety Report 11421862 (Version 1)
Quarter: 2015Q3

REPORT INFORMATION
  Report Type: Report from Study
  Country: US (occurrence: US)
  Receive Date: 20150827
  Receipt Date: 20150827
  Transmission Date: 20151125
  Serious: No
  Sender: FDA-Public Use
  Company Number: PHEH2015US016384

PATIENT
  Sex: Female

DRUGS (2)
  1. ZYKADIA [Suspect]
     Active Substance: CERITINIB
     Indication: LUNG NEOPLASM MALIGNANT
     Dosage: 5 DF (150 MG), QD
     Route: 048
     Dates: start: 20141209, end: 20150820
  2. ZYKADIA [Suspect]
     Active Substance: CERITINIB
     Indication: BRONCHIAL NEOPLASM

REACTIONS (1)
  - Hepatic enzyme increased [Unknown]
